FAERS Safety Report 5838292-4 (Version None)
Quarter: 2008Q3

REPORT INFORMATION
  Report Type: 
  Country: None (occurrence: None)
  Receive Date: 20080808
  Receipt Date: 20080725
  Transmission Date: 20090109
  Serious: Yes (Hospitalization)
  Sender: FDA-Public Use
  Company Number: JP-PURDUE-MAG_2008_0000701

PATIENT
  Age: 75 Year
  Sex: Male

DRUGS (13)
  1. THEOPHYLLINE [Suspect]
     Indication: ASTHMA
     Dosage: 400 MG, DAILY
     Route: 048
     Dates: start: 20080516, end: 20080518
  2. PRANLUKAST [Concomitant]
     Indication: ASTHMA
     Dosage: 450 MG, DAILY
     Route: 048
     Dates: start: 20080802, end: 20080711
  3. AMBROXOL HYDROCHLORIDE [Concomitant]
     Indication: ASTHMA
     Dosage: 45 MG, UNK
     Route: 048
     Dates: start: 20080731, end: 20080711
  4. SAIBOKU-TO [Concomitant]
     Indication: ASTHMA
     Dosage: 7.5 GRAM, UNK
     Route: 048
     Dates: start: 20080229, end: 20080704
  5. TIOTROPIUM BROMIDE HYDRATE [Concomitant]
     Indication: CHRONIC OBSTRUCTIVE PULMONARY DISEASE
     Dosage: 18 MCG, UNK
     Route: 055
     Dates: start: 20070601, end: 20080523
  6. SALMETEROL [Concomitant]
     Indication: ASTHMA
     Dosage: 1000 MCG, UNK
     Route: 055
     Dates: start: 20080404, end: 20080711
  7. FEXOFENADINE HYDROCHLORIDE [Concomitant]
     Indication: DRUG USE FOR UNKNOWN INDICATION
     Route: 048
  8. BECLOMETHASONE DIPROPIONATE [Concomitant]
     Indication: DRUG USE FOR UNKNOWN INDICATION
     Route: 055
  9. TELMISARTAN [Concomitant]
     Indication: HYPERTENSION
     Dosage: 20 MG, UNK
     Route: 048
     Dates: start: 20061206, end: 20080711
  10. ALBUTEROL [Concomitant]
     Indication: ASTHMA
     Dosage: 2.5 MG, UNK
     Route: 055
     Dates: start: 20080516, end: 20080516
  11. AMINOPHYLLINE [Concomitant]
     Indication: ASTHMA
     Dosage: 250 MG, UNK
     Route: 042
     Dates: start: 20080516, end: 20080516
  12. DEXAMETHASONE SODIUM PHOSPHATE [Concomitant]
     Indication: ASTHMA
     Dosage: 8 MG, UNK
     Route: 042
     Dates: start: 20080516, end: 20080516
  13. GLYCYRRHIZIN/GLYCINE/CYSTEINE [Concomitant]
     Indication: HEPATIC FUNCTION ABNORMAL
     Dosage: 200 MG, UNK
     Route: 042
     Dates: start: 20080523, end: 20080620

REACTIONS (2)
  - LIVER DISORDER [None]
  - RASH [None]
